FAERS Safety Report 13958152 (Version 2)
Quarter: 2018Q1

REPORT INFORMATION
  Report Type: Spontaneous
  Country: BR (occurrence: BR)
  Receive Date: 20170912
  Receipt Date: 20180109
  Transmission Date: 20180508
  Serious: Yes (Other)
  Sender: FDA-Public Use
  Company Number: PHHY2017BR131806

PATIENT
  Sex: Male
  Weight: 77 kg

DRUGS (4)
  1. BRIMONIDINE [Suspect]
     Active Substance: BRIMONIDINE TARTRATE
     Indication: GLAUCOMA
     Dosage: 1 GTT, BID
     Route: 047
  2. TRAVOPROSTA [Concomitant]
     Active Substance: TRAVOPROST
     Indication: GLAUCOMA
     Dosage: 1 GTT, QD
     Route: 047
  3. GLIBENCLAMIDE [Concomitant]
     Active Substance: GLYBURIDE
     Indication: DIABETES MELLITUS
     Dosage: 2 DF, QD
     Route: 048
  4. TIMOLOL. [Concomitant]
     Active Substance: TIMOLOL
     Indication: GLAUCOMA
     Dosage: 1 GTT, BID
     Route: 047

REACTIONS (3)
  - Eye irritation [Recovered/Resolved]
  - Blindness [Unknown]
  - Ocular hyperaemia [Recovered/Resolved]
